FAERS Safety Report 9700889 (Version 2)
Quarter: 2013Q4

REPORT INFORMATION
  Report Type: Spontaneous
  Country: ET (occurrence: None)
  Receive Date: 20131119
  Receipt Date: 20131125
  Transmission Date: 20140711
  Serious: Yes (Death, Hospitalization)
  Sender: FDA-Public Use
  Company Number: AUR-APL-2013-09684

PATIENT
  Age: 13 Day
  Sex: Female

DRUGS (3)
  1. CEFTRIAXONE (CEFTRIAXONE) [Suspect]
     Indication: MENINGITIS SALMONELLA
  2. AMPICILLIN (AMPICILLIN) [Suspect]
     Indication: MENINGITIS SALMONELLA
  3. GENTAMICIN [Suspect]
     Indication: MENINGITIS SALMONELLA

REACTIONS (8)
  - Coma [None]
  - Tonic convulsion [None]
  - Hypothermia [None]
  - Pyrexia [None]
  - Hydrocephalus [None]
  - Mental impairment [None]
  - Salmonella test positive [None]
  - Meningitis salmonella [None]
